FAERS Safety Report 7442690-5 (Version None)
Quarter: 2011Q2

REPORT INFORMATION
  Report Type: 
  Country: None (occurrence: None)
  Receive Date: 20110428
  Receipt Date: 20110419
  Transmission Date: 20111010
  Serious: Yes (Other)
  Sender: FDA-Public Use
  Company Number: CH-ASTRAZENECA-2011SE22774

PATIENT
  Age: 51 Year
  Sex: Female

DRUGS (1)
  1. SYMBICORT [Suspect]
     Indication: ASTHMA
     Dosage: 200/6 UG, 2 DF 3 PER 1 DAY
     Route: 055

REACTIONS (4)
  - SLEEP DISORDER [None]
  - NERVOUSNESS [None]
  - ANXIETY [None]
  - TREMOR [None]
